FAERS Safety Report 4650589-2 (Version None)
Quarter: 2005Q2

REPORT INFORMATION
  Report Type: 
  Country: None (occurrence: None)
  Receive Date: 20050429
  Receipt Date: 20050429
  Transmission Date: 20051028
  Serious: No
  Sender: FDA-Public Use
  Company Number: None

PATIENT
  Sex: Male
  Weight: 24.4 kg

DRUGS (2)
  1. TEMOZOLOMIDE [Suspect]
     Dosage: 90 MG/M2/DAY (85 MG PER DAY)
     Dates: start: 20050407
  2. RADIATION THERAPY [Suspect]
     Dosage: 180CGY PER DAY FOR 33 DAYS

REACTIONS (8)
  - DISEASE PROGRESSION [None]
  - DYSPHAGIA [None]
  - DYSPNOEA [None]
  - LOSS OF CONSCIOUSNESS [None]
  - ORAL INTAKE REDUCED [None]
  - POSTURING [None]
  - SPEECH DISORDER [None]
  - UNRESPONSIVE TO VERBAL STIMULI [None]
